FAERS Safety Report 8256960-4 (Version None)
Quarter: 2012Q1

REPORT INFORMATION
  Report Type: 
  Country: None (occurrence: None)
  Receive Date: 20120320
  Receipt Date: 20110913
  Transmission Date: 20120608
  Serious: Yes (Hospitalization, Other)
  Sender: FDA-Public Use
  Company Number: PHHY2011US115815

PATIENT

DRUGS (3)
  1. CISPLATIN [Suspect]
     Indication: OROPHARYNGEAL CANCER STAGE UNSPECIFIED
     Dosage: 20 MG/M2, WEEKLY
     Route: 042
  2. AFINITOR [Suspect]
     Dosage: 5 MG, QD
  3. AFINITOR [Suspect]
     Indication: OROPHARYNGEAL CANCER STAGE UNSPECIFIED
     Dosage: 2.5 MG, QD

REACTIONS (1)
  - SMALL INTESTINAL OBSTRUCTION [None]
